FAERS Safety Report 5319189-5 (Version None)
Quarter: 2007Q2

REPORT INFORMATION
  Report Type: 
  Country: None (occurrence: None)
  Receive Date: 20070508
  Receipt Date: 20070504
  Transmission Date: 20071010
  Serious: Yes (Death)
  Sender: FDA-Public Use
  Company Number: US-ASTRAZENECA-2007UW09572

PATIENT
  Age: 59 Year
  Sex: Female

DRUGS (12)
  1. NEXIUM [Suspect]
     Route: 048
     Dates: start: 20060530
  2. OXYCODONE HCL [Concomitant]
  3. GEMZAR [Concomitant]
  4. TARCEVA [Concomitant]
  5. DECADRON [Concomitant]
  6. ZOFRAN [Concomitant]
  7. REGLAN [Concomitant]
  8. PREDNISONE TAB [Concomitant]
  9. SYNTHROID [Concomitant]
  10. AMBIEN CR [Concomitant]
  11. PAXIL [Concomitant]
  12. CARAFATE [Concomitant]

REACTIONS (1)
  - PANCREATIC CARCINOMA [None]
